FAERS Safety Report 11770835 (Version 2)
Quarter: 2015Q4

REPORT INFORMATION
  Report Type: Spontaneous
  Country: JP (occurrence: JP)
  Receive Date: 20151123
  Receipt Date: 20151208
  Transmission Date: 20160304
  Serious: Yes (Hospitalization, Other)
  Sender: FDA-Public Use
  Company Number: JP-BRISTOL-MYERS SQUIBB COMPANY-BMS-2015-079640

PATIENT
  Age: 85 Year
  Sex: Male

DRUGS (1)
  1. ELIQUIS [Suspect]
     Active Substance: APIXABAN
     Indication: CEREBROVASCULAR ACCIDENT PROPHYLAXIS
     Dosage: 5 MG, BID
     Route: 048
     Dates: start: 20140312, end: 20151110

REACTIONS (3)
  - Putamen haemorrhage [Recovered/Resolved with Sequelae]
  - Cerebral ventricular rupture [Recovered/Resolved with Sequelae]
  - Transfusion [Unknown]

NARRATIVE: CASE EVENT DATE: 20151110
